FAERS Safety Report 14133690 (Version 1)
Quarter: 2017Q4

REPORT INFORMATION
  Report Type: Report from Study
  Country: BR (occurrence: BR)
  Receive Date: 20171026
  Receipt Date: 20171026
  Transmission Date: 20180321
  Serious: Yes (Other)
  Sender: FDA-Public Use
  Company Number: PHHY2016BR014288

PATIENT
  Sex: Female
  Weight: 68 kg

DRUGS (2)
  1. VIMOVO [Concomitant]
     Active Substance: ESOMEPRAZOLE MAGNESIUM\NAPROXEN
     Indication: PRODUCT USED FOR UNKNOWN INDICATION
     Route: 065
  2. ACLASTA [Suspect]
     Active Substance: ZOLEDRONIC ACID
     Indication: OSTEOPOROSIS
     Dosage: 1 DF, Q12MO
     Route: 042
     Dates: start: 20131204

REACTIONS (12)
  - Meniscus injury [Unknown]
  - Arthralgia [Not Recovered/Not Resolved]
  - Neck pain [Not Recovered/Not Resolved]
  - Drug ineffective [Unknown]
  - Gait disturbance [Unknown]
  - Depression [Unknown]
  - Spinal pain [Not Recovered/Not Resolved]
  - Malaise [Not Recovered/Not Resolved]
  - Peripheral swelling [Unknown]
  - Joint swelling [Unknown]
  - Pain in extremity [Not Recovered/Not Resolved]
  - Back pain [Not Recovered/Not Resolved]
